FAERS Safety Report 12000757 (Version 2)
Quarter: 2025Q3

REPORT INFORMATION
  Report Type: Spontaneous
  Country: EU (occurrence: EU)
  Receive Date: 20160204
  Receipt Date: 20250812
  Transmission Date: 20251021
  Serious: Yes (Hospitalization, Disabling, Other)
  Sender: SANOFI AVENTIS
  Company Number: EU-SA-2016SA017846

PATIENT
  Age: 60 Year
  Sex: Male
  Weight: 115 kg

DRUGS (9)
  1. BICALUTAMIDE [Suspect]
     Active Substance: BICALUTAMIDE
     Indication: Prostate cancer metastatic
     Route: 065
     Dates: start: 200905, end: 201104
  2. BICALUTAMIDE [Suspect]
     Active Substance: BICALUTAMIDE
     Route: 065
     Dates: start: 201104
  3. CABAZITAXEL [Suspect]
     Active Substance: CABAZITAXEL
     Indication: Prostate cancer metastatic
     Route: 065
     Dates: start: 201204, end: 201209
  4. CABAZITAXEL [Suspect]
     Active Substance: CABAZITAXEL
     Indication: Disease progression
     Route: 065
     Dates: start: 20120401, end: 20120801
  5. DOCETAXEL [Suspect]
     Active Substance: DOCETAXEL
     Indication: Prostate cancer metastatic
     Route: 065
     Dates: start: 201110, end: 201204
  6. DOCETAXEL [Suspect]
     Active Substance: DOCETAXEL
     Route: 065
     Dates: start: 20111001, end: 20120401
  7. PREDNISONE [Suspect]
     Active Substance: PREDNISONE
     Indication: Hormone-refractory prostate cancer
     Dosage: 12.5 MG, QD
     Route: 048
     Dates: start: 20110401, end: 20120801
  8. PREDNISONE [Suspect]
     Active Substance: PREDNISONE
     Indication: Prostate cancer
  9. GONADORELIN [Suspect]
     Active Substance: GONADORELIN
     Indication: Prostate cancer

REACTIONS (17)
  - Idiopathic intracranial hypertension [Recovered/Resolved]
  - Photophobia [Recovered/Resolved]
  - Eye pain [Recovered/Resolved]
  - Tinnitus [Recovered/Resolved]
  - Nausea [Recovered/Resolved]
  - Papilloedema [Recovered/Resolved]
  - Magnetic resonance imaging head abnormal [Recovered/Resolved]
  - Blindness [Recovering/Resolving]
  - Visual acuity reduced [Recovering/Resolving]
  - Brain herniation [Recovered/Resolved]
  - Exophthalmos [Recovered/Resolved]
  - Disease progression [Recovering/Resolving]
  - Weight increased [Recovered/Resolved]
  - Prostatic specific antigen increased [Unknown]
  - Visual impairment [Recovered/Resolved]
  - Fluid retention [Unknown]
  - Metastases to bone [Unknown]

NARRATIVE: CASE EVENT DATE: 20110401
